FAERS Safety Report 10455818 (Version 1)
Quarter: 2014Q3

REPORT INFORMATION
  Report Type: Spontaneous
  Country: US (occurrence: US)
  Receive Date: 20140916
  Receipt Date: 20140916
  Transmission Date: 20150326
  Serious: No
  Sender: FDA-Public Use
  Company Number: US-009507513-1408USA013589

PATIENT
  Sex: Female

DRUGS (1)
  1. NASONEX [Suspect]
     Active Substance: MOMETASONE FUROATE
     Dosage: TWO SPRAYS IN EACH NOSTRIL, QD
     Route: 045

REACTIONS (5)
  - Exposure to mould [Unknown]
  - No adverse event [Unknown]
  - Drug dose omission [Unknown]
  - Product odour abnormal [Unknown]
  - Product quality issue [Unknown]
